FAERS Safety Report 4454339-4 (Version None)
Quarter: 2004Q3

REPORT INFORMATION
  Report Type: 
  Country: None (occurrence: None)
  Receive Date: 20040920
  Receipt Date: 20040909
  Transmission Date: 20050211
  Serious: Yes (Life-Threatening, Hospitalization)
  Sender: FDA-Public Use
  Company Number: PT-MERCK-0409PRT00010

PATIENT
  Age: 58 Year
  Sex: Female
  Weight: 56 kg

DRUGS (9)
  1. CALCIUM CARBONATE [Concomitant]
     Route: 048
  2. ENALAPRIL MALEATE [Concomitant]
     Indication: HYPERTENSION
     Route: 048
  3. CRIXIVAN [Suspect]
     Indication: HIV INFECTION
     Route: 048
     Dates: start: 19990701
  4. INSULIN HUMAN, ISOPHANE [Concomitant]
     Indication: DIABETES MELLITUS NON-INSULIN-DEPENDENT
     Route: 051
     Dates: start: 19930101
  5. ISONIAZID [Suspect]
     Indication: TUBERCULOSIS PROPHYLAXIS
     Route: 048
     Dates: start: 20040503, end: 20040729
  6. LAMIVUDINE [Suspect]
     Indication: HIV INFECTION
     Route: 048
     Dates: start: 19990701
  7. NIFEDIPINE [Concomitant]
     Indication: HYPERTENSION
     Route: 048
  8. PYRIDOXINE [Concomitant]
     Indication: PROPHYLAXIS
     Route: 048
     Dates: start: 20040503, end: 20040731
  9. STAVUDINE [Suspect]
     Indication: HIV INFECTION
     Route: 048
     Dates: start: 19990701

REACTIONS (16)
  - ALANINE AMINOTRANSFERASE INCREASED [None]
  - ASPARTATE AMINOTRANSFERASE INCREASED [None]
  - BILIRUBIN CONJUGATED INCREASED [None]
  - BLOOD ALKALINE PHOSPHATASE INCREASED [None]
  - BLOOD BILIRUBIN INCREASED [None]
  - BLOOD GLUCOSE INCREASED [None]
  - DISORIENTATION [None]
  - DRUG INTERACTION [None]
  - GAMMA-GLUTAMYLTRANSFERASE INCREASED [None]
  - HEPATOTOXICITY [None]
  - LETHARGY [None]
  - MENTAL DISORDER [None]
  - PSYCHOMOTOR AGITATION [None]
  - SOMNOLENCE [None]
  - STUPOR [None]
  - TRANSAMINASES INCREASED [None]
